FAERS Safety Report 9665881 (Version 1)
Quarter: 2013Q4

REPORT INFORMATION
  Report Type: Spontaneous
  Country: US (occurrence: None)
  Receive Date: 20131101
  Receipt Date: 20131101
  Transmission Date: 20140711
  Serious: Yes (Disabling)
  Sender: FDA-Public Use
  Company Number: None

PATIENT
  Age: 35 Year
  Sex: Female
  Weight: 106.6 kg

DRUGS (1)
  1. CIPROFLOXACIN [Suspect]
     Indication: URINARY TRACT INFECTION
     Dosage: 1M TWICE DAILY, TAKEN BY MOUTH

REACTIONS (4)
  - Hypoaesthesia [None]
  - Paraesthesia [None]
  - Pain of skin [None]
  - Neuropathy peripheral [None]
